FAERS Safety Report 4898021-8 (Version None)
Quarter: 2006Q1

REPORT INFORMATION
  Report Type: 
  Country: None (occurrence: None)
  Receive Date: 20060201
  Receipt Date: 20060125
  Transmission Date: 20060701
  Serious: Yes (Hospitalization)
  Sender: FDA-Public Use
  Company Number: GB-ROCHE-433845

PATIENT
  Age: 42 Year
  Sex: Female
  Weight: 109.7 kg

DRUGS (2)
  1. XENICAL [Suspect]
     Indication: OBESITY
     Route: 048
     Dates: start: 20050609, end: 20051027
  2. LUSTRAL [Concomitant]
     Indication: ANTIDEPRESSANT THERAPY
     Dosage: RECEIVED DAILY.
     Route: 048
     Dates: start: 19950615

REACTIONS (2)
  - CHEST PAIN [None]
  - DYSPNOEA [None]
